FAERS Safety Report 9861052 (Version 1)
Quarter: 2014Q1

REPORT INFORMATION
  Report Type: Spontaneous
  Country: US (occurrence: None)
  Receive Date: 20140130
  Receipt Date: 20140130
  Transmission Date: 20141002
  Serious: Yes (Hospitalization)
  Sender: FDA-Public Use
  Company Number: FK201400254

PATIENT
  Age: 74 Year
  Sex: Female

DRUGS (3)
  1. METHOTREXATE [Suspect]
     Indication: RHEUMATOID ARTHRITIS
  2. TELMISARTAN (TELMISARTAN) [Concomitant]
  3. LEVOTHYROXINE (LEVOTHYROXINE) [Concomitant]

REACTIONS (5)
  - Bone tuberculosis [None]
  - Hypercalcaemia [None]
  - Pancytopenia [None]
  - Renal failure [None]
  - Skin necrosis [None]
